FAERS Safety Report 9476444 (Version 1)
Quarter: 2013Q3

REPORT INFORMATION
  Report Type: Spontaneous
  Country: CN (occurrence: CN)
  Receive Date: 20130826
  Receipt Date: 20130826
  Transmission Date: 20140515
  Serious: Yes (Other)
  Sender: FDA-Public Use
  Company Number: CN-PFIZER INC-2013241446

PATIENT
  Age: 61 Year
  Sex: Male

DRUGS (6)
  1. CLOPIDOGREL [Suspect]
     Dosage: UNK
     Route: 048
     Dates: start: 2011, end: 2011
  2. DEXAMETHASONE SODIUM PHOSPHATE [Suspect]
     Dosage: UNK
     Route: 042
     Dates: start: 2011, end: 2011
  3. METHYLPREDNISOLONE SODIUM SUCCINATE [Suspect]
     Dosage: UNK
     Route: 042
     Dates: start: 2011, end: 2011
  4. ACETYLSALICYLIC ACID [Suspect]
     Dosage: UNK
     Route: 048
     Dates: start: 2011, end: 2011
  5. MELOXICAM [Suspect]
     Dosage: UNK
     Route: 048
     Dates: start: 2011, end: 2011
  6. EPERISONE [Suspect]
     Dosage: UNK
     Route: 048
     Dates: start: 2011, end: 2011

REACTIONS (3)
  - Melaena [Recovered/Resolved]
  - Abdominal pain upper [Unknown]
  - Gastric mucosal lesion [Unknown]
